FAERS Safety Report 13986922 (Version 2)
Quarter: 2018Q2

REPORT INFORMATION
  Report Type: Spontaneous
  Country: US (occurrence: US)
  Receive Date: 20170919
  Receipt Date: 20180515
  Transmission Date: 20180711
  Serious: Yes (Death)
  Sender: FDA-Public Use
  Company Number: US-JNJFOC-20170917045

PATIENT
  Sex: Male

DRUGS (13)
  1. ONDANSETRON [Concomitant]
     Active Substance: ONDANSETRON
  2. FINASTERIDE. [Concomitant]
     Active Substance: FINASTERIDE
  3. METOLAZONE. [Concomitant]
     Active Substance: METOLAZONE
  4. IMBRUVICA [Suspect]
     Active Substance: IBRUTINIB
     Indication: WALDENSTROM^S MACROGLOBULINAEMIA
     Route: 048
     Dates: start: 20160415
  5. FUROSEMIDE. [Concomitant]
     Active Substance: FUROSEMIDE
  6. ALEVE [Concomitant]
     Active Substance: NAPROXEN SODIUM
  7. FISH OIL W/TOCOPHEROL [Concomitant]
  8. FAMOTIDINE. [Concomitant]
     Active Substance: FAMOTIDINE
  9. METOPROLOL TARTRATE. [Concomitant]
     Active Substance: METOPROLOL TARTRATE
  10. RANITIDINE. [Concomitant]
     Active Substance: RANITIDINE
  11. TYLENOL [Concomitant]
     Active Substance: ACETAMINOPHEN
  12. PRILOSEC [Concomitant]
     Active Substance: OMEPRAZOLE MAGNESIUM
  13. TAMSULOSIN [Concomitant]
     Active Substance: TAMSULOSIN

REACTIONS (1)
  - Disease progression [Fatal]
